FAERS Safety Report 16427544 (Version 5)
Quarter: 2022Q2

REPORT INFORMATION
  Report Type: Spontaneous
  Country: PL (occurrence: PL)
  Receive Date: 20190613
  Receipt Date: 20220504
  Transmission Date: 20220721
  Serious: Yes (Hospitalization)
  Sender: FDA-Public Use
  Company Number: PL-VIIV HEALTHCARE LIMITED-PL2019GSK099639

PATIENT
  Age: 52 Year
  Sex: Male

DRUGS (10)
  1. DARUNAVIR [Suspect]
     Active Substance: DARUNAVIR
     Indication: HIV infection
     Route: 048
  2. DARUNAVIR [Suspect]
     Active Substance: DARUNAVIR
     Indication: HIV infection
  3. LAMIVUDINE AND ZIDOVUDINE [Suspect]
     Active Substance: LAMIVUDINE\ZIDOVUDINE
     Indication: HIV infection
     Dosage: 150/300 MG TWICE A DAY
     Route: 065
  4. LAMIVUDINE AND ZIDOVUDINE [Suspect]
     Active Substance: LAMIVUDINE\ZIDOVUDINE
     Indication: Antiviral treatment
  5. TENOFOVIR DISOPROXIL FUMARATE [Suspect]
     Active Substance: TENOFOVIR DISOPROXIL FUMARATE
     Indication: Antiviral treatment
     Route: 065
  6. TENOFOVIR DISOPROXIL FUMARATE [Suspect]
     Active Substance: TENOFOVIR DISOPROXIL FUMARATE
     Indication: Antiviral treatment
  7. RITONAVIR [Suspect]
     Active Substance: RITONAVIR
     Indication: HIV infection
     Route: 065
  8. RITONAVIR [Suspect]
     Active Substance: RITONAVIR
     Indication: Antiviral treatment
  9. EMTRICITABINE\TENOFOVIR DISOPROXIL FUMARATE [Suspect]
     Active Substance: EMTRICITABINE\TENOFOVIR DISOPROXIL FUMARATE
     Indication: HIV infection
     Dosage: 200MG/300MG/DAY
     Route: 065
  10. ATAZANAVIR [Concomitant]
     Active Substance: ATAZANAVIR
     Indication: HIV infection
     Route: 065

REACTIONS (21)
  - Relapsing fever [Recovered/Resolved]
  - Cranial nerve palsies multiple [Recovered/Resolved]
  - Encephalitis [Recovered/Resolved]
  - Cerebellar syndrome [Recovered/Resolved]
  - Confusional state [Recovered/Resolved]
  - Nervous system disorder [Recovered/Resolved]
  - Psychomotor retardation [Recovered/Resolved]
  - Pathogen resistance [Recovered/Resolved]
  - Condition aggravated [Recovered/Resolved]
  - Facial paralysis [Recovered/Resolved]
  - Vth nerve injury [Recovered/Resolved]
  - VIIIth nerve injury [Recovered/Resolved]
  - Hyperproteinaemia [Recovered/Resolved]
  - Facial paralysis [Recovered/Resolved]
  - Immune reconstitution inflammatory syndrome [Recovered/Resolved]
  - Headache [Recovered/Resolved]
  - Psychomotor retardation [Recovered/Resolved]
  - Pleocytosis [Recovered/Resolved]
  - Cerebellar syndrome [Recovered/Resolved]
  - Pathogen resistance [Recovered/Resolved]
  - Vth nerve injury [Recovered/Resolved]
